FAERS Safety Report 12741226 (Version 4)
Quarter: 2016Q4

REPORT INFORMATION
  Report Type: Spontaneous
  Country: FR (occurrence: FR)
  Receive Date: 20160914
  Receipt Date: 20161117
  Transmission Date: 20170207
  Serious: Yes (Hospitalization)
  Sender: FDA-Public Use
  Company Number: FR-ACCORD-043781

PATIENT
  Age: 44 Year
  Sex: Male

DRUGS (3)
  1. CISPLATIN ACCORD [Suspect]
     Active Substance: CISPLATIN
     Indication: TESTICULAR GERM CELL TUMOUR
     Dosage: 1ST COURSE TREATMENT (DAY 1),?DAY 2, 3, 4, 5 ON 28, 29, 30-JUN-2016 AND ON 01-JUL-2016 RESPECTIVELY
     Route: 042
     Dates: start: 20160627
  2. BLEOMYCINE BELLON [Suspect]
     Active Substance: BLEOMYCIN SULFATE
     Indication: TESTICULAR GERM CELL TUMOUR
     Dosage: 1ST COURSE TREATMENT ON DAY 2.?DAY 9 (05-JUL-2016), ?DAY 16 (12-JUL-2016).??2ND COURSE TREAT. DA
     Route: 042
     Dates: start: 20160628
  3. ETOPOSIDE. [Suspect]
     Active Substance: ETOPOSIDE
     Indication: TESTICULAR GERM CELL TUMOUR
     Dosage: 1ST COURSE TREATMENT (DAY 1),?DAY 2, 3, 4, 5 ON 28, 29, 30-JUN-2016 AND ON 01-JUL-2016 RESPECTIVELY
     Route: 042
     Dates: start: 20160627

REACTIONS (1)
  - Venous thrombosis [Recovered/Resolved with Sequelae]

NARRATIVE: CASE EVENT DATE: 20160705
